FAERS Safety Report 24759011 (Version 2)
Quarter: 2025Q1

REPORT INFORMATION
  Report Type: Spontaneous
  Country: JP (occurrence: JP)
  Receive Date: 20241220
  Receipt Date: 20250319
  Transmission Date: 20250409
  Serious: Yes (Death, Life-Threatening, Hospitalization, Other)
  Sender: BRISTOL-MYERS SQUIBB COMPANY
  Company Number: JP-ONO-2024JP025580

PATIENT
  Age: 83 Year
  Sex: Male
  Weight: 52.9 kg

DRUGS (6)
  1. OPDIVO [Suspect]
     Active Substance: NIVOLUMAB
     Indication: Metastatic renal cell carcinoma
     Route: 041
     Dates: start: 20240522, end: 20240522
  2. DILTIAZEM HYDROCHLORIDE [Concomitant]
     Active Substance: DILTIAZEM HYDROCHLORIDE
     Indication: Product used for unknown indication
     Route: 048
     Dates: start: 20240521
  3. AMLODIPINE BESYLATE\AZILSARTAN [Concomitant]
     Active Substance: AMLODIPINE BESYLATE\AZILSARTAN
     Indication: Product used for unknown indication
     Route: 048
     Dates: start: 20240521
  4. BELSOMRA [Concomitant]
     Active Substance: SUVOREXANT
     Indication: Product used for unknown indication
     Route: 048
     Dates: start: 20240521
  5. YOKUKANSANKACHIMPIHANGE [ANGELICA ACUTILOBA ROOT;ATRACTYLODES LANCEA R [Concomitant]
     Indication: Product used for unknown indication
     Route: 048
     Dates: start: 20240521
  6. HERBALS [Concomitant]
     Active Substance: HERBALS
     Indication: Product used for unknown indication
     Route: 048
     Dates: start: 20240521

REACTIONS (5)
  - Immune-mediated lung disease [Fatal]
  - Duodenal ulcer [Unknown]
  - Duodenal perforation [Unknown]
  - Acute respiratory distress syndrome [Unknown]
  - Pleural effusion [Unknown]

NARRATIVE: CASE EVENT DATE: 20240603
